FAERS Safety Report 7291545-8 (Version None)
Quarter: 2011Q1

REPORT INFORMATION
  Report Type: 
  Country: None (occurrence: None)
  Receive Date: 20110214
  Receipt Date: 20110203
  Transmission Date: 20110831
  Serious: Yes (Hospitalization, Other)
  Sender: FDA-Public Use
  Company Number: US-BAXTER-2010BH014937

PATIENT
  Age: 19 Year
  Sex: Female
  Weight: 35 kg

DRUGS (12)
  1. INTRALIPID 10% [Concomitant]
     Indication: VITAMIN SUPPLEMENTATION
     Route: 042
     Dates: start: 20100731
  2. CALCITRIOL [Concomitant]
     Indication: VITAMIN D
     Route: 042
     Dates: start: 20100509, end: 20100711
  3. LORAZEPAM [Concomitant]
     Indication: ANXIETY
     Route: 042
     Dates: start: 20100711, end: 20100729
  4. DIANEAL [Suspect]
     Indication: PERITONEAL DIALYSIS
     Route: 033
     Dates: start: 20100422, end: 20100820
  5. DIANEAL [Suspect]
     Route: 033
     Dates: start: 20100922
  6. ARANESP [Concomitant]
     Indication: ANAEMIA
     Route: 058
     Dates: start: 20100423
  7. KEPPRA [Concomitant]
     Indication: CONVULSION
     Route: 042
     Dates: start: 20100615
  8. HYDROMORPHONE HCL [Concomitant]
     Indication: ANALGESIC THERAPY
     Route: 042
     Dates: start: 20100602, end: 20100719
  9. PANTOPRAZOLE [Concomitant]
     Indication: ENZYME INHIBITION
     Route: 042
     Dates: start: 20100506, end: 20100711
  10. CEFTRIAXONE [Concomitant]
     Indication: ANTIBIOTIC THERAPY
     Route: 042
     Dates: start: 20100618
  11. EPOGEN [Concomitant]
     Indication: ANAEMIA
     Route: 042
     Dates: start: 20100422, end: 20101014
  12. REGULAR INSULIN [Concomitant]
     Indication: BLOOD GLUCOSE INCREASED
     Route: 042
     Dates: start: 20100522

REACTIONS (8)
  - PERITONITIS BACTERIAL [None]
  - FUNGAL PERITONITIS [None]
  - IMMUNODEFICIENCY [None]
  - LETHARGY [None]
  - VOMITING [None]
  - ABASIA [None]
  - DEHYDRATION [None]
  - PANCREATITIS [None]
